FAERS Safety Report 9225496 (Version 1)
Quarter: 2013Q2

REPORT INFORMATION
  Report Type: Spontaneous
  Country: PL (occurrence: PL)
  Receive Date: 20130411
  Receipt Date: 20130411
  Transmission Date: 20140414
  Serious: Yes (Death, Other)
  Sender: FDA-Public Use
  Company Number: PL-ROCHE-1211689

PATIENT
  Age: 53 Year
  Sex: Female

DRUGS (9)
  1. HERCEPTIN [Suspect]
     Indication: PRODUCT USED FOR UNKNOWN INDICATION
     Route: 065
     Dates: start: 20060911, end: 20070903
  2. HERCEPTIN [Suspect]
     Route: 065
     Dates: start: 20071122
  3. XELODA [Suspect]
     Indication: PRODUCT USED FOR UNKNOWN INDICATION
     Route: 065
     Dates: start: 20100801, end: 20111027
  4. TAXOTERE [Concomitant]
     Route: 065
  5. ADRIAMYCIN [Concomitant]
     Route: 065
  6. CYCLOPHOSPHAMIDE [Concomitant]
     Route: 065
  7. VINORELBINE [Concomitant]
  8. LAPATINIB [Concomitant]
     Route: 065
     Dates: start: 20100801, end: 20111027
  9. GEMCITABINE [Concomitant]

REACTIONS (9)
  - Death [Fatal]
  - Disease recurrence [Unknown]
  - Breast neoplasm [Unknown]
  - Palmar-plantar erythrodysaesthesia syndrome [Unknown]
  - Metastases to bone [Unknown]
  - Metastases to lung [Unknown]
  - Metastases to liver [Unknown]
  - Metastases to central nervous system [Unknown]
  - Metastases to lymph nodes [Unknown]
